FAERS Safety Report 7941690-6 (Version None)
Quarter: 2011Q4

REPORT INFORMATION
  Report Type: 
  Country: None (occurrence: None)
  Receive Date: 20111128
  Receipt Date: 20111128
  Transmission Date: 20120403
  Serious: Yes (Other)
  Sender: FDA-Public Use
  Company Number: None

PATIENT
  Age: 58 Year
  Sex: Female
  Weight: 88.45 kg

DRUGS (21)
  1. HYDROCHOLOROTHIAZIDE [Concomitant]
  2. FLUTICASONE PROPIONATE [Concomitant]
     Route: 045
  3. NAPROXEN [Concomitant]
  4. SERTRALINE HYDROCHLORIDE [Concomitant]
  5. PREMPRO [Concomitant]
  6. VITAMIN D [Concomitant]
  7. VALTREX -VALCYCLOVIR [Concomitant]
  8. ALVESCO [Concomitant]
  9. ZOCOR [Concomitant]
  10. VALIUM [Concomitant]
  11. PREVACID -LANSOPRZAOLE [Concomitant]
  12. TRAZODONE HCL [Concomitant]
  13. PROAIR HFA [Concomitant]
     Route: 055
  14. ULTRAM [Concomitant]
  15. VITAMIN B-12 [Concomitant]
  16. ZOLOFT [Suspect]
     Indication: DEPRESSION
     Dosage: 1 TAB DAILY
     Route: 048
     Dates: start: 20111114, end: 20111124
  17. REFRESH OPTIVE EYE DROPS [Concomitant]
  18. ADVAIR HFA [Concomitant]
  19. PLAQUENIL [Concomitant]
  20. SINGULAIR [Concomitant]
  21. METHOCARBANOL [Concomitant]

REACTIONS (6)
  - DIZZINESS [None]
  - GINGIVAL SWELLING [None]
  - PARAESTHESIA [None]
  - AGITATION [None]
  - UNEVALUABLE EVENT [None]
  - COORDINATION ABNORMAL [None]
